FAERS Safety Report 8972717 (Version 2)
Quarter: 2013Q1

REPORT INFORMATION
  Report Type: Spontaneous
  Country: AU (occurrence: AU)
  Receive Date: 20121218
  Receipt Date: 20130222
  Transmission Date: 20140127
  Serious: Yes (Life-Threatening, Hospitalization, Other)
  Sender: FDA-Public Use
  Company Number: AU-ELI_LILLY_AND_COMPANY-AU201212000508

PATIENT
  Age: 43 Year
  Sex: Male
  Weight: 65.9 kg

DRUGS (2)
  1. ZYPREXA RELPREVV [Suspect]
     Indication: SCHIZOPHRENIA
     Dosage: 300 MG, UNK
     Route: 030
     Dates: start: 20121130
  2. OLANZAPINE [Suspect]
     Dosage: 20 MG, UNKNOWN
     Route: 048

REACTIONS (7)
  - Respiratory rate decreased [Recovered/Resolved]
  - Coma [Recovered/Resolved]
  - Sedation [Recovered/Resolved]
  - Drug interaction [Recovered/Resolved]
  - Drug dependence [Unknown]
  - Miosis [Recovered/Resolved]
  - Prescribed overdose [Not Recovered/Not Resolved]
